FAERS Safety Report 15004719 (Version 2)
Quarter: 2018Q3

REPORT INFORMATION
  Report Type: Spontaneous
  Country: US (occurrence: US)
  Receive Date: 20180613
  Receipt Date: 20180716
  Transmission Date: 20181010
  Serious: No
  Sender: FDA-Public Use
  Company Number: US-SA-2018SA147423

PATIENT
  Age: 73 Year
  Sex: Male
  Weight: 170 kg

DRUGS (1)
  1. ZANTAC [Suspect]
     Active Substance: RANITIDINE HYDROCHLORIDE
     Indication: THERMAL BURN
     Dosage: UNK
     Dates: start: 20170801, end: 20170815

REACTIONS (1)
  - Throat irritation [Unknown]
